FAERS Safety Report 17542607 (Version 2)
Quarter: 2020Q2

REPORT INFORMATION
  Report Type: Report from Study
  Country: None (occurrence: US)
  Receive Date: 20200315
  Receipt Date: 20200519
  Transmission Date: 20200713
  Serious: Yes (Other)
  Sender: FDA-Public Use
  Company Number: US-ABBVIE-20K-163-3319630-00

PATIENT
  Age: 63 Year
  Sex: Female
  Weight: 65.83 kg

DRUGS (3)
  1. HUMIRA [Suspect]
     Active Substance: ADALIMUMAB
     Indication: PSORIASIS
     Route: 058
     Dates: start: 20200301
  2. OXYBUTYNIN. [Concomitant]
     Active Substance: OXYBUTYNIN CHLORIDE
     Indication: POLLAKIURIA
  3. TIROSINT [Concomitant]
     Active Substance: LEVOTHYROXINE SODIUM
     Indication: HYPOTHYROIDISM

REACTIONS (10)
  - Blood urea decreased [Unknown]
  - Blood chloride decreased [Unknown]
  - Red blood cell count decreased [Unknown]
  - Humerus fracture [Unknown]
  - Blood urea nitrogen/creatinine ratio decreased [Unknown]
  - Mean cell haemoglobin increased [Unknown]
  - Blood glucose increased [Unknown]
  - Mean cell haemoglobin [Unknown]
  - Accident [Unknown]
  - Blood sodium decreased [Unknown]

NARRATIVE: CASE EVENT DATE: 20200309
